FAERS Safety Report 9626013 (Version 1)
Quarter: 2013Q4

REPORT INFORMATION
  Report Type: Spontaneous
  Country: US (occurrence: None)
  Receive Date: 20131011
  Receipt Date: 20131011
  Transmission Date: 20140711
  Serious: Yes (Life-Threatening, Hospitalization)
  Sender: FDA-Public Use
  Company Number: 2013SA097474

PATIENT
  Age: 84 Year
  Sex: Male

DRUGS (2)
  1. BCG [Suspect]
     Indication: BLADDER TRANSITIONAL CELL CARCINOMA
     Route: 018
  2. ISONIAZID [Suspect]
     Indication: BOVINE TUBERCULOSIS

REACTIONS (3)
  - Bovine tuberculosis [None]
  - Aortic aneurysm [None]
  - Hepatitis [None]
